FAERS Safety Report 6863136 (Version 4)
Quarter: 2013Q2

REPORT INFORMATION
  Report Type: Spontaneous
  Country: US (occurrence: US)
  Receive Date: 20081222
  Receipt Date: 20130605
  Transmission Date: 20140414
  Serious: Yes (Death)
  Sender: FDA-Public Use
  Company Number: US-PFIZER INC-2008153589

PATIENT
  Age: 54 Year
  Sex: Female

DRUGS (4)
  1. ZIPRASIDONE HCL [Suspect]
     Dosage: UNK
     Route: 065
  2. SERTRALINE HCL [Suspect]
     Dosage: UNK
     Route: 048
  3. ZOLPIDEM TARTRATE [Suspect]
     Dosage: UNK
     Route: 065
  4. CHARCOAL, ACTIVATED [Suspect]
     Dosage: UNK
     Route: 065

REACTIONS (1)
  - Completed suicide [Fatal]
